FAERS Safety Report 13756830 (Version 3)
Quarter: 2017Q4

REPORT INFORMATION
  Report Type: Spontaneous
  Country: US (occurrence: US)
  Receive Date: 20170714
  Receipt Date: 20171013
  Transmission Date: 20180320
  Serious: Yes (Hospitalization)
  Sender: FDA-Public Use
  Company Number: US-ACTELION-A-NJ2017-156607

PATIENT
  Age: 47 Year
  Sex: Male

DRUGS (2)
  1. OPSUMIT [Suspect]
     Active Substance: MACITENTAN
     Indication: PULMONARY ARTERIAL HYPERTENSION
     Dosage: 10 MG, QD
     Route: 048
     Dates: start: 20170504
  2. SILDENAFIL. [Concomitant]
     Active Substance: SILDENAFIL
     Indication: PULMONARY HYPERTENSION

REACTIONS (6)
  - Pleural effusion [Recovering/Resolving]
  - Staphylococcal infection [Unknown]
  - Cough [Unknown]
  - Acute respiratory failure [Unknown]
  - Depression [Unknown]
  - Pulmonary oedema [Recovering/Resolving]
